FAERS Safety Report 13682523 (Version 2)
Quarter: 2018Q2

REPORT INFORMATION
  Report Type: Report from Study
  Country: US (occurrence: US)
  Receive Date: 20170623
  Receipt Date: 20180523
  Transmission Date: 20180711
  Serious: Yes (Life-Threatening, Hospitalization, Other)
  Sender: FDA-Public Use
  Company Number: US-IGSA-SR10004963

PATIENT
  Age: 64 Year
  Sex: Female

DRUGS (1)
  1. GAMUNEX-C [Suspect]
     Active Substance: HUMAN IMMUNOGLOBULIN G
     Indication: LINEAR IGA DISEASE
     Dosage: UNK
     Route: 042
     Dates: start: 20170531, end: 20170602

REACTIONS (10)
  - Vaginal haemorrhage [Not Recovered/Not Resolved]
  - Renal pain [Recovering/Resolving]
  - Urinary tract infection [Not Recovered/Not Resolved]
  - Myocardial infarction [Recovering/Resolving]
  - Malaise [Not Recovered/Not Resolved]
  - Haematuria [Recovering/Resolving]
  - Rash [Not Recovered/Not Resolved]
  - Acute kidney injury [Not Recovered/Not Resolved]
  - Vomiting [Recovering/Resolving]
  - Headache [Recovering/Resolving]

NARRATIVE: CASE EVENT DATE: 20170526
